FAERS Safety Report 10255353 (Version 1)
Quarter: 2014Q2

REPORT INFORMATION
  Report Type: Spontaneous
  Country: US (occurrence: US)
  Receive Date: 20140624
  Receipt Date: 20140624
  Transmission Date: 20141212
  Serious: No
  Sender: FDA-Public Use
  Company Number: US-PFIZER INC-2014169314

PATIENT
  Age: 80 Year
  Sex: Female

DRUGS (12)
  1. TORISEL [Suspect]
     Indication: RENAL CANCER STAGE IV
     Dosage: 25 MG, WEEKLY
     Route: 042
     Dates: start: 20130702, end: 20131107
  2. ZOMETA [Concomitant]
     Dosage: 4 MG, EVERY 3 MONTHS
     Dates: start: 20130801, end: 20140103
  3. ZOMETA [Concomitant]
     Dosage: 4MG, Q 28D
     Dates: start: 20131114, end: 20140207
  4. ZOMETA [Concomitant]
     Dosage: 4MG, Q 28D
     Dates: start: 20140214, end: 20140418
  5. PROCRIT [Concomitant]
     Indication: ANAEMIA
     Dosage: 40000 UNK, WEEKLY
     Dates: start: 20130829, end: 20140207
  6. INFLUENZA VACCINE [Concomitant]
     Dosage: UNK
     Dates: start: 20131003, end: 20131003
  7. ATENOLOL [Concomitant]
     Dosage: 25 MG, 2X/DAY
     Route: 048
  8. MOTRIN [Concomitant]
     Dosage: 100 MG, AS NEEDED
     Route: 048
  9. OCUVITE [Concomitant]
     Dosage: 150 MG, 1X/DAY
  10. PROCHLORPERAZINE MALEATE [Concomitant]
     Indication: NAUSEA
     Dosage: 10 MG, AS NEEDED
  11. TRAMADOL [Concomitant]
     Dosage: 50 MG, AS NEEDED
     Route: 048
  12. AFINITOR [Concomitant]
     Dosage: 10 MG, 1X/DAY
     Route: 048

REACTIONS (2)
  - Disease progression [Unknown]
  - Renal cancer stage IV [Unknown]
